FAERS Safety Report 9112360 (Version 1)
Quarter: 2013Q1

REPORT INFORMATION
  Report Type: Spontaneous
  Country: US (occurrence: US)
  Receive Date: 20130219
  Receipt Date: 20130219
  Transmission Date: 20140127
  Serious: No
  Sender: FDA-Public Use
  Company Number: US-BRISTOL-MYERS SQUIBB COMPANY-16706681

PATIENT
  Age: 61 Year
  Sex: Male

DRUGS (4)
  1. ORENCIA FOR INJ [Suspect]
     Indication: RHEUMATOID ARTHRITIS
     Dosage: ALSO IV UPTO LAST INFUSION 11APR2012?THEN SQ STARTED IN APR-2012
     Route: 058
     Dates: start: 201204
  2. METHOTREXATE [Concomitant]
  3. PLAQUENIL [Concomitant]
  4. FOLIC ACID [Concomitant]

REACTIONS (1)
  - Drug ineffective [Unknown]
